FAERS Safety Report 6422536-4 (Version None)
Quarter: 2009Q4

REPORT INFORMATION
  Report Type: 
  Country: None (occurrence: None)
  Receive Date: 20091102
  Receipt Date: 20091021
  Transmission Date: 20100525
  Serious: Yes (Hospitalization, Other)
  Sender: FDA-Public Use
  Company Number: US-BIOGENIDEC-2009BI034023

PATIENT
  Age: 54 Year
  Sex: Female

DRUGS (1)
  1. TYSABRI [Suspect]
     Indication: MULTIPLE SCLEROSIS
     Route: 042
     Dates: start: 20080829

REACTIONS (7)
  - ACCIDENT [None]
  - ADRENAL DISORDER [None]
  - BENIGN NEOPLASM [None]
  - CONVULSION [None]
  - PELVIC FRACTURE [None]
  - SEPSIS [None]
  - URINARY TRACT INFECTION [None]
